FAERS Safety Report 7006101-6 (Version None)
Quarter: 2010Q3

REPORT INFORMATION
  Report Type: 
  Country: None (occurrence: None)
  Receive Date: 20100921
  Receipt Date: 20100915
  Transmission Date: 20110219
  Serious: Yes (Other)
  Sender: FDA-Public Use
  Company Number: US-PFIZER INC-2010116867

PATIENT
  Sex: Male

DRUGS (2)
  1. SOLU-MEDROL [Suspect]
     Indication: MULTIPLE SCLEROSIS
     Dosage: UNK
     Route: 042
  2. REBIF [Suspect]
     Indication: MULTIPLE SCLEROSIS
     Dosage: 44 UG, 3 IN 1 WEEK
     Route: 058
     Dates: start: 20090326

REACTIONS (4)
  - OEDEMA PERIPHERAL [None]
  - PALPITATIONS [None]
  - SKIN DISCOLOURATION [None]
  - WEIGHT DECREASED [None]
